FAERS Safety Report 6455949-5 (Version None)
Quarter: 2009Q4

REPORT INFORMATION
  Report Type: 
  Country: None (occurrence: None)
  Receive Date: 20091119
  Receipt Date: 20091109
  Transmission Date: 20100525
  Serious: Yes (Disabling, Other)
  Sender: FDA-Public Use
  Company Number: 2009AL007179

PATIENT
  Age: 59 Year
  Sex: Male

DRUGS (11)
  1. CITALOPRAM HYDROBROMIDE [Suspect]
     Indication: ANTIDEPRESSANT THERAPY
     Dosage: 20 MG; PO
     Route: 048
  2. ATENOLOL [Concomitant]
  3. LOSARTAN [Concomitant]
  4. SIMVASTATIN [Concomitant]
  5. FUROSEMIDE [Concomitant]
  6. ACETYLSALICYLIC ACID [Concomitant]
  7. EXOREX [Concomitant]
  8. DOVONEX [Concomitant]
  9. XAMIOL [Concomitant]
  10. BETNOVATE [Concomitant]
  11. COAL TAR EXTRACT [Concomitant]

REACTIONS (1)
  - DEAFNESS TRANSITORY [None]
